FAERS Safety Report 7794677 (Version 3)
Quarter: 2014Q1

REPORT INFORMATION
  Report Type: Spontaneous
  Country: FR (occurrence: FR)
  Receive Date: 20110201
  Receipt Date: 20140103
  Transmission Date: 20141002
  Serious: Yes (Hospitalization, Other)
  Sender: FDA-Public Use
  Company Number: FR-WATSON-2011-01155

PATIENT
  Age: 8 Month
  Sex: Male
  Weight: 9.12 kg

DRUGS (1)
  1. SALBUTAMOL [Suspect]
     Dosage: UNK
     Route: 055
     Dates: start: 20110116, end: 20110117

REACTIONS (2)
  - Oxygen saturation decreased [Recovered/Resolved]
  - Respiratory disorder [Recovered/Resolved]
